FAERS Safety Report 11878170 (Version 1)
Quarter: 2015Q4

REPORT INFORMATION
  Report Type: Spontaneous
  Country: US (occurrence: US)
  Receive Date: 20151230
  Receipt Date: 20151230
  Transmission Date: 20160305
  Serious: No
  Sender: FDA-Public Use
  Company Number: US-BAYER-2015-497776

PATIENT
  Age: 88 Year
  Sex: Male
  Weight: 122.45 kg

DRUGS (1)
  1. OXYTROL FOR WOMEN [Suspect]
     Active Substance: OXYBUTYNIN
     Indication: HYPERTONIC BLADDER
     Dosage: 1 DF, UNK
     Route: 061
     Dates: start: 2014, end: 20151229

REACTIONS (1)
  - Product use issue [None]

NARRATIVE: CASE EVENT DATE: 2014
